FAERS Safety Report 5399622-3 (Version None)
Quarter: 2007Q3

REPORT INFORMATION
  Report Type: 
  Country: None (occurrence: None)
  Receive Date: 20070727
  Receipt Date: 20070719
  Transmission Date: 20080115
  Serious: Yes (Life-Threatening, Hospitalization, Disabling)
  Sender: FDA-Public Use
  Company Number: BE-PFIZER INC-2007054801

PATIENT
  Sex: Male
  Weight: 67 kg

DRUGS (13)
  1. VFEND [Suspect]
     Route: 048
     Dates: start: 20070426, end: 20070618
  2. SIMVASTATIN [Suspect]
  3. CYCLOSPORINE [Suspect]
  4. CALCIUM CHLORIDE [Concomitant]
     Route: 048
  5. NEORAL [Concomitant]
     Route: 048
     Dates: start: 20070329, end: 20070618
  6. IMURAN [Concomitant]
     Route: 048
  7. MEDROL [Concomitant]
     Route: 048
  8. ZOCOR [Concomitant]
     Route: 048
  9. BACTRIM [Concomitant]
     Route: 048
  10. ZITHROMAX [Concomitant]
     Route: 048
  11. ESOMEPRAZOLE MAGNESIUM [Concomitant]
     Route: 048
  12. CORDARONE [Concomitant]
     Route: 048
  13. VALCYTE [Concomitant]
     Route: 048

REACTIONS (2)
  - RENAL FAILURE ACUTE [None]
  - RHABDOMYOLYSIS [None]
